FAERS Safety Report 18560000 (Version 2)
Quarter: 2020Q4

REPORT INFORMATION
  Report Type: Spontaneous
  Country: US (occurrence: US)
  Receive Date: 20201130
  Receipt Date: 20201229
  Transmission Date: 20210114
  Serious: No
  Sender: FDA-Public Use
  Company Number: US-ASTRAZENECA-2020SF57219

PATIENT
  Age: 3466 Week
  Sex: Male
  Weight: 102.1 kg

DRUGS (2)
  1. PULMICORT FLEXHALER [Suspect]
     Active Substance: BUDESONIDE
     Indication: CORONAVIRUS INFECTION
     Route: 055
     Dates: start: 20201114
  2. ZINC. [Concomitant]
     Active Substance: ZINC
     Indication: HYPOVITAMINOSIS
     Route: 048

REACTIONS (4)
  - Cough [Not Recovered/Not Resolved]
  - Drug dose omission by device [Not Recovered/Not Resolved]
  - Product use issue [Not Recovered/Not Resolved]
  - Device leakage [Not Recovered/Not Resolved]

NARRATIVE: CASE EVENT DATE: 2020
